FAERS Safety Report 21233241 (Version 2)
Quarter: 2022Q3

REPORT INFORMATION
  Report Type: Spontaneous
  Country: US (occurrence: US)
  Receive Date: 20220819
  Receipt Date: 20220822
  Transmission Date: 20221027
  Serious: No
  Sender: FDA-Public Use
  Company Number: US-PFIZER INC-202201067851

PATIENT
  Age: 68 Year
  Sex: Female

DRUGS (1)
  1. PAXLOVID [Suspect]
     Active Substance: NIRMATRELVIR\RITONAVIR
     Indication: COVID-19 treatment
     Dosage: UNK, 2X/DAY
     Dates: start: 20220813, end: 20220816

REACTIONS (5)
  - Somnolence [Unknown]
  - Lip swelling [Unknown]
  - Pruritus [Unknown]
  - Oral pain [Unknown]
  - Gingival pain [Unknown]

NARRATIVE: CASE EVENT DATE: 20220801
